FAERS Safety Report 24611230 (Version 2)
Quarter: 2025Q3

REPORT INFORMATION
  Report Type: Report from Study
  Country: US (occurrence: US)
  Receive Date: 20241113
  Receipt Date: 20250803
  Transmission Date: 20251021
  Serious: Yes (Life-Threatening, Hospitalization, Other)
  Sender: ALEXION PHARMACEUTICALS
  Company Number: US-AstraZeneca-CH-00742406A

PATIENT
  Sex: Male
  Weight: 120.64 kg

DRUGS (1)
  1. BRILINTA [Suspect]
     Active Substance: TICAGRELOR

REACTIONS (3)
  - Myocardial infarction [Unknown]
  - Arterial thrombosis [Unknown]
  - Product dose omission issue [Unknown]
